FAERS Safety Report 8207793-6 (Version None)
Quarter: 2012Q1

REPORT INFORMATION
  Report Type: 
  Country: None (occurrence: None)
  Receive Date: 20120314
  Receipt Date: 20120307
  Transmission Date: 20120608
  Serious: Yes (Hospitalization)
  Sender: FDA-Public Use
  Company Number: IT-COVIDIEN/TYCO HEALTHCARE/MALLINCKRODT-T201201004

PATIENT
  Age: 54 Year
  Sex: Female

DRUGS (1)
  1. MEPERIDINE HCL [Suspect]
     Indication: SEDATION
     Dosage: 50 MG, UNK
     Route: 051

REACTIONS (2)
  - ANAPHYLACTIC REACTION [None]
  - STRESS CARDIOMYOPATHY [None]
